FAERS Safety Report 5789443-1 (Version None)
Quarter: 2008Q2

REPORT INFORMATION
  Report Type: 
  Country: None (occurrence: None)
  Receive Date: 20080626
  Receipt Date: 20080218
  Transmission Date: 20081010
  Serious: Yes (Hospitalization)
  Sender: FDA-Public Use
  Company Number: FR-AVENTIS-200713228FR

PATIENT
  Age: 77 Year
  Sex: Female

DRUGS (18)
  1. TARGOCID [Suspect]
     Route: 042
     Dates: start: 20070903, end: 20070905
  2. TARGOCID [Suspect]
     Route: 042
     Dates: start: 20070905, end: 20070910
  3. TARGOCID [Suspect]
     Route: 042
     Dates: start: 20070911, end: 20070918
  4. TARGOCID [Suspect]
     Route: 042
     Dates: start: 20070919, end: 20070920
  5. RIFADIN [Suspect]
     Route: 042
     Dates: start: 20070903, end: 20070920
  6. SECTRAL [Concomitant]
     Indication: DRUG USE FOR UNKNOWN INDICATION
     Route: 048
  7. PRIMPERAN                          /00041901/ [Concomitant]
     Indication: DRUG USE FOR UNKNOWN INDICATION
     Route: 048
  8. AMLOR [Concomitant]
     Indication: DRUG USE FOR UNKNOWN INDICATION
     Route: 048
  9. HYZAAR [Concomitant]
     Indication: DRUG USE FOR UNKNOWN INDICATION
     Route: 048
  10. FONZYLANE [Concomitant]
     Indication: DRUG USE FOR UNKNOWN INDICATION
     Route: 048
  11. GLUCOPHAGE [Concomitant]
     Indication: DIABETES MELLITUS
     Route: 048
  12. NEXIUM [Concomitant]
     Indication: GASTRIC ULCER
     Route: 048
  13. NEXIUM [Concomitant]
     Route: 048
  14. GAVISCON [Concomitant]
     Indication: DRUG USE FOR UNKNOWN INDICATION
     Route: 048
  15. NITRODERM [Concomitant]
     Route: 062
  16. NOVOLOG [Concomitant]
     Indication: DIABETES MELLITUS
     Route: 058
  17. VANCOMYCIN [Concomitant]
     Route: 042
     Dates: start: 20070828, end: 20070903
  18. GENTAMICIN [Concomitant]
     Route: 042
     Dates: start: 20070828, end: 20070903

REACTIONS (6)
  - ASPIRATION BONE MARROW [None]
  - BONE MARROW FAILURE [None]
  - ERYTHROPENIA [None]
  - LEUKOPENIA [None]
  - PANCYTOPENIA [None]
  - THROMBOCYTOPENIA [None]
